FAERS Safety Report 16714067 (Version 1)
Quarter: 2019Q3

REPORT INFORMATION
  Report Type: Report from Study
  Country: IT (occurrence: IT)
  Receive Date: 20190819
  Receipt Date: 20190819
  Transmission Date: 20191004
  Serious: Yes (Hospitalization)
  Sender: FDA-Public Use
  Company Number: IT-TEVA-2019-IT-1094019

PATIENT
  Age: 82 Year
  Sex: Male

DRUGS (8)
  1. VASEXTEN 20 MG CAPSULE A RILASCIO MODIFICATO [Concomitant]
     Route: 048
  2. FUROSEMIDE. [Concomitant]
     Active Substance: FUROSEMIDE
     Route: 048
  3. BISOPROLOL HEMI FUMARATE [Suspect]
     Active Substance: BISOPROLOL
     Indication: CARDIAC FAILURE
     Dosage: 1 DOSAGE FORM
     Route: 048
  4. OLPREZIDE 20 MG/12,5 MG COMPRESSE RIVESTITE CON FILM [Suspect]
     Active Substance: HYDROCHLOROTHIAZIDE\OLMESARTAN MEDOXOMIL
     Indication: HYPERTENSION
     Dosage: 1 DF
     Route: 048
  5. TORVAST 20 MG COMPRESSE MASTICABILI [Concomitant]
     Route: 048
  6. KANRENOL? 100 COMPRESSE [Suspect]
     Active Substance: CANRENOATE POTASSIUM
     Indication: HYPOKALAEMIA
     Dosage: 1 DF
     Route: 048
  7. ALFUZOSIN HYDROCHLORIDE. [Concomitant]
     Active Substance: ALFUZOSIN HYDROCHLORIDE
     Route: 048
  8. CATAPRESAN 150 MICROGRAMMI COMPRESSE [Concomitant]
     Route: 048

REACTIONS (4)
  - Hyperkalaemia [Recovered/Resolved]
  - Sinus bradycardia [Recovered/Resolved]
  - Thrombocytopenia [Recovered/Resolved]
  - Anaemia [Recovered/Resolved]

NARRATIVE: CASE EVENT DATE: 20190611
